FAERS Safety Report 7095191-0 (Version None)
Quarter: 2010Q4

REPORT INFORMATION
  Report Type: 
  Country: None (occurrence: None)
  Receive Date: 20101103
  Receipt Date: 20101021
  Transmission Date: 20110411
  Serious: Yes (Death)
  Sender: FDA-Public Use
  Company Number: 2010-0006

PATIENT
  Sex: Female

DRUGS (1)
  1. HALDOL [Suspect]
     Indication: DEPRESSION
     Dosage: INJECTION

REACTIONS (1)
  - CARDIO-RESPIRATORY ARREST [None]
